FAERS Safety Report 4600582-0 (Version None)
Quarter: 2005Q1

REPORT INFORMATION
  Report Type: 
  Country: None (occurrence: None)
  Receive Date: 20050304
  Receipt Date: 20050225
  Transmission Date: 20050727
  Serious: Yes (Life-Threatening, Other)
  Sender: FDA-Public Use
  Company Number: HQWYE735701MAR05

PATIENT
  Age: 60 Year
  Sex: Male

DRUGS (1)
  1. EFFEXOR [Suspect]
     Indication: AFFECTIVE DISORDER
     Dosage: 75 MG 1X PER 1 DAY, ORAL
     Route: 048
     Dates: start: 20030615, end: 20050126

REACTIONS (3)
  - DEPRESSION [None]
  - DRUG WITHDRAWAL SYNDROME [None]
  - NEGATIVE THOUGHTS [None]
